FAERS Safety Report 7220690-8 (Version None)
Quarter: 2011Q1

REPORT INFORMATION
  Report Type: 
  Country: None (occurrence: None)
  Receive Date: 20110111
  Receipt Date: 20110104
  Transmission Date: 20110831
  Serious: Yes (Hospitalization)
  Sender: FDA-Public Use
  Company Number: US-ELI_LILLY_AND_COMPANY-US201101001213

PATIENT
  Sex: Female

DRUGS (3)
  1. HUMALOG [Suspect]
     Indication: DIABETES MELLITUS
     Dosage: UNK, UNK
     Dates: start: 20070101
  2. HUMALOG [Suspect]
     Dosage: UNK, UNK
     Dates: start: 20070101
  3. LANTUS [Concomitant]

REACTIONS (2)
  - MUSCLE STRAIN [None]
  - INFLUENZA [None]
